FAERS Safety Report 26023475 (Version 1)
Quarter: 2025Q4

REPORT INFORMATION
  Report Type: Spontaneous
  Country: US (occurrence: US)
  Receive Date: 20251111
  Receipt Date: 20251111
  Transmission Date: 20260118
  Serious: No
  Sender: STRIDES
  Company Number: US-STRIDES ARCOLAB LIMITED-2025SP013121

PATIENT

DRUGS (10)
  1. GABAPENTIN [Suspect]
     Active Substance: GABAPENTIN
     Indication: Musculoskeletal chest pain
     Dosage: UNK
     Route: 065
  2. GABAPENTIN [Suspect]
     Active Substance: GABAPENTIN
     Indication: Neuralgia
  3. OXYCODONE [Suspect]
     Active Substance: OXYCODONE
     Indication: Musculoskeletal chest pain
     Dosage: UNK
     Route: 065
  4. OXYCODONE [Suspect]
     Active Substance: OXYCODONE
     Indication: Neuralgia
  5. BACLOFEN [Suspect]
     Active Substance: BACLOFEN
     Indication: Musculoskeletal chest pain
     Dosage: PUMP
     Route: 065
  6. BACLOFEN [Suspect]
     Active Substance: BACLOFEN
     Indication: Neuralgia
  7. TYLENOL [Suspect]
     Active Substance: ACETAMINOPHEN
     Indication: Musculoskeletal chest pain
     Dosage: UNK
     Route: 065
  8. TYLENOL [Suspect]
     Active Substance: ACETAMINOPHEN
     Indication: Neuralgia
  9. TIZANIDINE [Suspect]
     Active Substance: TIZANIDINE
     Indication: Musculoskeletal chest pain
     Dosage: UNK
     Route: 065
  10. TIZANIDINE [Suspect]
     Active Substance: TIZANIDINE
     Indication: Neuralgia

REACTIONS (2)
  - Therapy non-responder [Unknown]
  - Off label use [Unknown]
